FAERS Safety Report 9019801 (Version 2)
Quarter: 2013Q2

REPORT INFORMATION
  Report Type: Spontaneous
  Country: FR (occurrence: FR)
  Receive Date: 20130118
  Receipt Date: 20130412
  Transmission Date: 20140414
  Serious: Yes (Other)
  Sender: FDA-Public Use
  Company Number: FR-EISAI INC-E3810-06194-SPO-FR

PATIENT
  Age: 32 Year
  Sex: Female
  Weight: 53 kg

DRUGS (12)
  1. ACIPHEX (RABEPRAZOLE) [Suspect]
     Route: 048
  2. MIDAZOLAM [Suspect]
     Indication: ANAESTHESIA
     Dosage: UNKNOWN
     Route: 042
     Dates: start: 20121203
  3. SUFENTA [Suspect]
     Indication: ANAESTHESIA
     Dosage: UNKNOWN
     Route: 042
     Dates: start: 20121203
  4. PROPOFOL [Suspect]
     Indication: ANAESTHESIA
     Dosage: UNKNOWN
     Route: 042
     Dates: start: 20121203
  5. ATRACURIUM [Suspect]
     Indication: ANAESTHESIA
     Dosage: UNKNOWN
     Route: 042
     Dates: start: 20121203
  6. DEXAMETHASONE [Suspect]
     Indication: ANAESTHESIA
     Dosage: UNKNOWN
     Route: 065
     Dates: start: 20121203
  7. DROLEPTAN [Suspect]
     Indication: ANAESTHESIA
     Dosage: UNKNOWN
     Route: 065
     Dates: start: 20121203
  8. PARIET (RABEPRAZOLE) [Concomitant]
     Indication: PRODUCT USED FOR UNKNOWN INDICATION
     Dosage: LONG TERM TREATMENT
     Route: 065
  9. KETAMINE [Concomitant]
     Route: 065
     Dates: start: 20121203
  10. IXEL [Concomitant]
     Dosage: LONG-TERM TREATMENT
     Route: 065
  11. CHRONO-INDOCID [Concomitant]
     Dosage: LONG-TERM TREATMENT
     Route: 065
  12. DOLIPRANE [Concomitant]
     Indication: PAIN
     Dosage: LONG-TERM TREATMENT
     Route: 065

REACTIONS (2)
  - Shock [Recovered/Resolved]
  - Hypotension [Recovered/Resolved]
